FAERS Safety Report 21145315 (Version 1)
Quarter: 2022Q3

REPORT INFORMATION
  Report Type: Spontaneous
  Country: FR (occurrence: FR)
  Receive Date: 20220729
  Receipt Date: 20220729
  Transmission Date: 20221027
  Serious: Yes (Other)
  Sender: FDA-Public Use
  Company Number: None

PATIENT
  Age: 76 Year
  Sex: Male
  Weight: 100 kg

DRUGS (3)
  1. IRINOTECAN [Suspect]
     Active Substance: IRINOTECAN
     Indication: Rectal cancer
     Dates: start: 20160520
  2. FLUOROURACIL [Suspect]
     Active Substance: FLUOROURACIL
     Indication: Rectal cancer
     Dates: start: 20161025
  3. AVASTIN [Suspect]
     Active Substance: BEVACIZUMAB
     Indication: Rectal cancer
     Dosage: DURATION-1 MONTH
     Dates: start: 20160520, end: 201606

REACTIONS (1)
  - Cholinergic syndrome [Recovered/Resolved]

NARRATIVE: CASE EVENT DATE: 20160520
